FAERS Safety Report 24010443 (Version 2)
Quarter: 2024Q3

REPORT INFORMATION
  Report Type: Spontaneous
  Country: CA (occurrence: CA)
  Receive Date: 20240625
  Receipt Date: 20240930
  Transmission Date: 20241017
  Serious: No
  Sender: ORGANON
  Company Number: CA-ORGANON-O2406CAN001913

PATIENT
  Age: 17 Year
  Sex: Male

DRUGS (2)
  1. EZETIMIBE [Suspect]
     Active Substance: EZETIMIBE
     Indication: Type IIa hyperlipidaemia
     Dosage: UNK
     Route: 065
  2. EZETIMIBE [Suspect]
     Active Substance: EZETIMIBE
     Indication: Hypercholesterolaemia

REACTIONS (1)
  - Drug ineffective [Unknown]
